FAERS Safety Report 16067317 (Version 2)
Quarter: 2019Q2

REPORT INFORMATION
  Report Type: Spontaneous
  Country: US (occurrence: US)
  Receive Date: 20190313
  Receipt Date: 20190404
  Transmission Date: 20190711
  Serious: No
  Sender: FDA-Public Use
  Company Number: US-GLAXOSMITHKLINE-US2019044895

PATIENT
  Age: 56 Year
  Sex: Male

DRUGS (2)
  1. NICODERM CQ [Suspect]
     Active Substance: NICOTINE
     Indication: DRUG WITHDRAWAL MAINTENANCE THERAPY
     Dosage: 14 MG, UNK
     Dates: start: 20190310
  2. NICODERM CQ [Suspect]
     Active Substance: NICOTINE
     Dosage: 14 MG, UNK
     Dates: start: 20190310

REACTIONS (3)
  - Drug ineffective [Unknown]
  - Product complaint [Unknown]
  - Wrong technique in product usage process [Unknown]
